FAERS Safety Report 10652311 (Version 1)
Quarter: 2014Q4

REPORT INFORMATION
  Report Type: Spontaneous
  Country: US (occurrence: None)
  Receive Date: 20141212
  Receipt Date: 20141212
  Transmission Date: 20150529
  Serious: Yes (Other)
  Sender: FDA-Public Use
  Company Number: None

PATIENT
  Age: 49 Year
  Sex: Female
  Weight: 67.13 kg

DRUGS (6)
  1. GABAPENTIN. [Concomitant]
     Active Substance: GABAPENTIN
  2. LIDOCAINE. [Suspect]
     Active Substance: LIDOCAINE
     Indication: FRACTURE PAIN
     Dosage: THIN FILM TO AFFECTED AREA 3X DAILY ON THE SKIN
     Dates: start: 20140929, end: 20141117
  3. CYCLDENZAPRINE [Concomitant]
  4. LOPRESSOR [Concomitant]
     Active Substance: METOPROLOL TARTRATE
  5. SEROQUEL [Concomitant]
     Active Substance: QUETIAPINE FUMARATE
  6. LIDOCAINE. [Suspect]
     Active Substance: LIDOCAINE
     Indication: ANKLE FRACTURE
     Dosage: THIN FILM TO AFFECTED AREA 3X DAILY ON THE SKIN
     Dates: start: 20140929, end: 20141117

REACTIONS (2)
  - Hypoaesthesia [None]
  - Wrong technique in drug usage process [None]
